FAERS Safety Report 7524664-9 (Version None)
Quarter: 2011Q2

REPORT INFORMATION
  Report Type: 
  Country: None (occurrence: None)
  Receive Date: 20110606
  Receipt Date: 20110526
  Transmission Date: 20111010
  Serious: Yes (Other)
  Sender: FDA-Public Use
  Company Number: DE-PFIZER INC-2011096446

PATIENT
  Age: 61 Year
  Sex: Male
  Weight: 86 kg

DRUGS (5)
  1. ATACAND [Suspect]
     Dosage: UNK MG, UNK
     Route: 048
  2. PANTOPRAZOLE [Suspect]
     Dosage: 20 MG DAILY
     Route: 048
  3. CLINDAMYCIN HCL [Suspect]
     Indication: INFECTION PROPHYLAXIS
     Dosage: 300 MG, 4X/DAY
     Route: 048
  4. BISOPROLOL FUMARATE [Suspect]
     Dosage: 2.5-5 MG, UNK
     Route: 048
  5. METOPROLOL SUCCINATE [Suspect]
     Dosage: 95 MG, DAILY
     Route: 048

REACTIONS (3)
  - SIALOADENITIS [None]
  - SWOLLEN TONGUE [None]
  - ABDOMINAL PAIN [None]
